FAERS Safety Report 6463476-4 (Version None)
Quarter: 2009Q4

REPORT INFORMATION
  Report Type: 
  Country: None (occurrence: None)
  Receive Date: 20091201
  Receipt Date: 20091009
  Transmission Date: 20100525
  Serious: Yes (Other)
  Sender: FDA-Public Use
  Company Number: US-AMGEN-QUU368433

PATIENT
  Sex: Female

DRUGS (3)
  1. ENBREL [Suspect]
     Indication: RHEUMATOID ARTHRITIS
     Route: 058
  2. METHOTREXATE [Concomitant]
     Route: 048
  3. PLAQUENIL [Concomitant]
     Route: 048

REACTIONS (5)
  - HEADACHE [None]
  - JOINT RANGE OF MOTION DECREASED [None]
  - PAIN IN EXTREMITY [None]
  - PNEUMONIA [None]
  - RHEUMATOID ARTHRITIS [None]
